FAERS Safety Report 17879959 (Version 2)
Quarter: 2020Q3

REPORT INFORMATION
  Report Type: Spontaneous
  Country: IE (occurrence: IE)
  Receive Date: 20200610
  Receipt Date: 20200714
  Transmission Date: 20201103
  Serious: Yes (Life-Threatening, Hospitalization, Other)
  Sender: FDA-Public Use
  Company Number: IE-B.I. PHARMACEUTICALS,INC./RIDGEFIELD-2020-12-027785

PATIENT
  Age: 48 Year
  Sex: Female

DRUGS (3)
  1. CATAPRES [Suspect]
     Active Substance: CLONIDINE HYDROCHLORIDE
     Indication: ANXIETY
  2. CATAPRES [Suspect]
     Active Substance: CLONIDINE HYDROCHLORIDE
     Indication: DEPRESSION
     Dosage: UNK
     Route: 065
  3. PROPRANOLOL [Concomitant]
     Active Substance: PROPRANOLOL HYDROCHLORIDE
     Indication: HYPERTENSION
     Route: 065

REACTIONS (11)
  - Arterial thrombosis [Recovering/Resolving]
  - Disorientation [Recovering/Resolving]
  - Pneumonia aspiration [Recovered/Resolved]
  - Confusional state [Recovering/Resolving]
  - Drug withdrawal syndrome [Recovered/Resolved]
  - Condition aggravated [Recovering/Resolving]
  - Volume blood decreased [Recovering/Resolving]
  - Posterior reversible encephalopathy syndrome [Recovered/Resolved]
  - Hypertensive crisis [Recovering/Resolving]
  - Acute kidney injury [Recovered/Resolved]
  - Polycythaemia [Recovered/Resolved]
